FAERS Safety Report 8126282 (Version 4)
Quarter: 2012Q4

REPORT INFORMATION
  Report Type: 
  Country: US (occurrence: US)
  Receive Date: 20110908
  Receipt Date: 20120924
  Transmission Date: 20130627
  Serious: Yes (Hospitalization, Other)
  Sender: FDA-Public Use
  Company Number: US-ELI_LILLY_AND_COMPANY-US201105008774

PATIENT
  Age: 79 Year
  Sex: Male

DRUGS (6)
  1. FORTEO [Suspect]
     Indication: OSTEOPOROSIS
     Dosage: 20 ug, qd
     Route: 065
     Dates: start: 20110518, end: 201106
  2. FORTEO [Suspect]
     Dosage: 20 ug, qd
     Route: 065
     Dates: start: 20110613
  3. FORTEO [Suspect]
     Dosage: 20 ug, qd
     Dates: start: 20120604
  4. NORCO [Concomitant]
  5. OXYCONTIN [Concomitant]
  6. ANALGESICS [Concomitant]
     Indication: PAIN

REACTIONS (15)
  - Hospitalisation [Unknown]
  - Hip fracture [Unknown]
  - Fall [Unknown]
  - Road traffic accident [Unknown]
  - Pruritus [Not Recovered/Not Resolved]
  - Sleep disorder due to a general medical condition [Unknown]
  - Lip swelling [Unknown]
  - Swollen tongue [Unknown]
  - Dyspnoea [Unknown]
  - Pain [Unknown]
  - Nausea [Unknown]
  - Incorrect drug administration duration [Unknown]
  - Malaise [Unknown]
  - Fall [Unknown]
  - Eye infection [Unknown]
